FAERS Safety Report 19867975 (Version 1)
Quarter: 2021Q3

REPORT INFORMATION
  Report Type: Spontaneous
  Country: US (occurrence: US)
  Receive Date: 20210922
  Receipt Date: 20210922
  Transmission Date: 20211014
  Serious: No
  Sender: FDA-Public Use
  Company Number: US-HIKMA PHARMACEUTICALS USA INC.-US-H14001-20-04467

PATIENT
  Sex: Female

DRUGS (3)
  1. PREDNISONE. [Suspect]
     Active Substance: PREDNISONE
     Dosage: 1H BEFORE PROCEDURE
     Route: 048
  2. PREDNISONE. [Suspect]
     Active Substance: PREDNISONE
     Dosage: 7H BEFORE PROCEDURE
     Route: 048
  3. PREDNISONE. [Suspect]
     Active Substance: PREDNISONE
     Indication: PREMEDICATION
     Dosage: 13H BEFORE PROCEDURE
     Route: 048

REACTIONS (1)
  - Off label use [Unknown]
